FAERS Safety Report 10049564 (Version 1)
Quarter: 2014Q1

REPORT INFORMATION
  Report Type: Spontaneous
  Country: US (occurrence: None)
  Receive Date: 20140328
  Receipt Date: 20140328
  Transmission Date: 20141002
  Serious: Yes (Death, Hospitalization, Other)
  Sender: FDA-Public Use
  Company Number: AUR-APL-2014-03778

PATIENT
  Age: 38 Year
  Sex: Male

DRUGS (1)
  1. METFORMIN [Suspect]
     Indication: PRODUCT USED FOR UNKNOWN INDICATION
     Route: 048

REACTIONS (26)
  - Blood pressure decreased [None]
  - Toxicity to various agents [None]
  - Cardio-respiratory arrest [None]
  - Hypoxic-ischaemic encephalopathy [None]
  - Multi-organ failure [None]
  - Pulmonary oedema [None]
  - Bronchopneumonia [None]
  - Cardiomegaly [None]
  - Hepatic steatosis [None]
  - Arteriosclerosis [None]
  - Arteriosclerosis coronary artery [None]
  - Exposure via ingestion [None]
  - Blood glucose increased [None]
  - Blood urea increased [None]
  - Blood creatinine increased [None]
  - International normalised ratio increased [None]
  - Nausea [None]
  - Muscle spasms [None]
  - Lactic acidosis [None]
  - Unresponsive to stimuli [None]
  - Aortic arteriosclerosis [None]
  - Drug level increased [None]
  - Completed suicide [None]
  - Intentional overdose [None]
  - Agitation [None]
  - Faecal incontinence [None]
